FAERS Safety Report 7589363-6 (Version None)
Quarter: 2011Q3

REPORT INFORMATION
  Report Type: 
  Country: None (occurrence: None)
  Receive Date: 20110705
  Receipt Date: 20110624
  Transmission Date: 20111222
  Serious: Yes (Hospitalization, Other)
  Sender: FDA-Public Use
  Company Number: US-ROCHE-751886

PATIENT
  Sex: Male
  Weight: 86.2 kg

DRUGS (4)
  1. ACCUTANE [Suspect]
     Route: 065
     Dates: start: 19990901, end: 20000301
  2. ACCUTANE [Suspect]
     Indication: ACNE
     Route: 065
     Dates: start: 19971021
  3. ACCUTANE [Suspect]
     Route: 065
     Dates: start: 19971222, end: 19980222
  4. ACCUTANE [Suspect]
     Route: 065
     Dates: start: 20010820, end: 20011229

REACTIONS (22)
  - COLON CANCER [None]
  - CONJUNCTIVITIS [None]
  - DRY SKIN [None]
  - ILEUS PARALYTIC [None]
  - ARTHRALGIA [None]
  - ACNE [None]
  - IRRITABLE BOWEL SYNDROME [None]
  - ANAL FISSURE [None]
  - DEPRESSED MOOD [None]
  - ECZEMA [None]
  - LIP DRY [None]
  - COLONIC POLYP [None]
  - FATIGUE [None]
  - EPISTAXIS [None]
  - PAIN [None]
  - COLITIS ULCERATIVE [None]
  - CALCULUS URETERIC [None]
  - NEPHROLITHIASIS [None]
  - CHEILITIS [None]
  - INJURY [None]
  - INFLAMMATORY BOWEL DISEASE [None]
  - INTESTINAL OBSTRUCTION [None]
